FAERS Safety Report 7001193-2 (Version None)
Quarter: 2010Q3

REPORT INFORMATION
  Report Type: 
  Country: None (occurrence: None)
  Receive Date: 20100920
  Receipt Date: 20070820
  Transmission Date: 20110219
  Serious: No
  Sender: FDA-Public Use
  Company Number: US-ASTRAZENECA-2006UW08435

PATIENT
  Age: 14093 Day
  Sex: Female
  Weight: 108 kg

DRUGS (7)
  1. SEROQUEL [Suspect]
     Indication: DEPRESSION
     Route: 048
     Dates: start: 20060101
  2. SEROQUEL [Suspect]
     Dosage: 100 MG-400 MG
     Route: 048
     Dates: start: 20060222
  3. ABILIFY [Concomitant]
     Route: 048
     Dates: start: 20051121
  4. TRAZODONE HCL [Concomitant]
     Route: 048
     Dates: start: 20060222
  5. OXYCODONE AND ACETAMINOPHEN [Concomitant]
     Dosage: 5/325
     Dates: start: 20060820
  6. NAPROXEN [Concomitant]
     Dates: start: 20060820
  7. ZYPREXA [Concomitant]
     Route: 048
     Dates: start: 20010117

REACTIONS (2)
  - BACK INJURY [None]
  - DIABETES MELLITUS [None]
